FAERS Safety Report 15077388 (Version 1)
Quarter: 2018Q2

REPORT INFORMATION
  Report Type: Spontaneous
  Country: DE (occurrence: DE)
  Receive Date: 20180627
  Receipt Date: 20180627
  Transmission Date: 20180711
  Serious: Yes (Disabling, Other)
  Sender: FDA-Public Use
  Company Number: DE-BAYER-2018-115776

PATIENT
  Age: 51 Year
  Sex: Female
  Weight: 52 kg

DRUGS (1)
  1. CIPROFLOXACIN MONOHYDROCHLORIDE [Suspect]
     Active Substance: CIPROFLOXACIN
     Indication: SINUSITIS
     Route: 048

REACTIONS (35)
  - Mitochondrial cytopathy [Unknown]
  - Asthenia [Recovering/Resolving]
  - Abnormal loss of weight [Unknown]
  - Bone pain [Unknown]
  - Jaw cyst [Unknown]
  - Dizziness [Unknown]
  - Muscle twitching [Unknown]
  - Myalgia [Unknown]
  - Oropharyngeal pain [Unknown]
  - Chronic fatigue syndrome [Recovered/Resolved]
  - Chills [Unknown]
  - Disability [Unknown]
  - Nervous system disorder [Unknown]
  - Hypoaesthesia [Unknown]
  - Food intolerance [Unknown]
  - Contusion [Unknown]
  - Tooth loss [Unknown]
  - Paraesthesia [Unknown]
  - Disturbance in attention [Unknown]
  - Blister [Unknown]
  - Photophobia [Unknown]
  - Palpitations [Unknown]
  - Nausea [Recovering/Resolving]
  - Loss of personal independence in daily activities [Unknown]
  - Malnutrition [Recovered/Resolved]
  - Autoimmune thyroiditis [Unknown]
  - Inflammatory bowel disease [Unknown]
  - Peripheral sensory neuropathy [Unknown]
  - Headache [Unknown]
  - Arthralgia [Unknown]
  - Early retirement [Unknown]
  - Hyperacusis [Unknown]
  - Vertigo [Unknown]
  - Parosmia [Unknown]
  - Retching [Recovered/Resolved]

NARRATIVE: CASE EVENT DATE: 1988
